FAERS Safety Report 23617199 (Version 1)
Quarter: 2024Q1

REPORT INFORMATION
  Report Type: Spontaneous
  Country: US (occurrence: None)
  Receive Date: 20240311
  Receipt Date: 20240311
  Transmission Date: 20240409
  Serious: Yes (Hospitalization)
  Sender: FDA-Public Use
  Company Number: None

PATIENT
  Sex: Female

DRUGS (1)
  1. NUCALA [Suspect]
     Active Substance: MEPOLIZUMAB
     Indication: Asthma
     Dosage: 100 MG  EVERY 28 DAYS SQ?
     Route: 058
     Dates: start: 202311

REACTIONS (3)
  - Respiratory syncytial virus infection [None]
  - Asthma [None]
  - Drug ineffective [None]
